FAERS Safety Report 5004499-1 (Version None)
Quarter: 2006Q2

REPORT INFORMATION
  Report Type: 
  Country: None (occurrence: None)
  Receive Date: 20060511
  Receipt Date: 20060501
  Transmission Date: 20061013
  Serious: Yes (Other)
  Sender: FDA-Public Use
  Company Number: 2005153558

PATIENT
  Sex: Male

DRUGS (7)
  1. VIAGRA [Suspect]
     Indication: ERECTILE DYSFUNCTION
     Dosage: ORAL
     Route: 048
  2. BIAXIN [Concomitant]
  3. PROMETHAZINE [Concomitant]
  4. OXAPROZIN [Concomitant]
  5. DOXYCYCLINE [Concomitant]
  6. LIPITOR [Concomitant]
  7. ATENOLOL [Concomitant]

REACTIONS (5)
  - BLINDNESS UNILATERAL [None]
  - CHRONIC SINUSITIS [None]
  - CYST [None]
  - OPTIC ISCHAEMIC NEUROPATHY [None]
  - POLYP [None]
